FAERS Safety Report 4813905-4 (Version None)
Quarter: 2005Q4

REPORT INFORMATION
  Report Type: 
  Country: None (occurrence: None)
  Receive Date: 20051028
  Receipt Date: 20030804
  Transmission Date: 20060501
  Serious: No
  Sender: FDA-Public Use
  Company Number: US-GLAXOSMITHKLINE-A0420300A

PATIENT
  Age: 85 Year
  Sex: Female

DRUGS (2)
  1. SEREVENT [Suspect]
     Indication: ASTHMA
     Route: 055
  2. ADVAIR DISKUS 100/50 [Suspect]
     Indication: ASTHMA
     Route: 055

REACTIONS (4)
  - APHONIA [None]
  - DRUG INEFFECTIVE [None]
  - INSOMNIA [None]
  - WHEEZING [None]
